FAERS Safety Report 18830706 (Version 1)
Quarter: 2021Q1

REPORT INFORMATION
  Report Type: Spontaneous
  Country: US (occurrence: US)
  Receive Date: 20210201
  Receipt Date: 20210201
  Transmission Date: 20210419
  Serious: No
  Sender: FDA-Public Use
  Company Number: US-ABBVIE-20K-163-3678751-00

PATIENT
  Age: 36 Year
  Sex: Female
  Weight: 94.43 kg

DRUGS (11)
  1. VITAMIN D [Concomitant]
     Active Substance: VITAMIN D NOS
     Indication: VITAMIN D DECREASED
  2. BACLOFEN. [Concomitant]
     Active Substance: BACLOFEN
     Indication: DUODENOGASTRIC REFLUX
  3. HUMIRA [Suspect]
     Active Substance: ADALIMUMAB
     Indication: ARTHRITIS
     Route: 058
     Dates: start: 202010
  4. PROTONIX [Concomitant]
     Active Substance: PANTOPRAZOLE SODIUM
     Indication: DUODENOGASTRIC REFLUX
  5. TOPAMAX [Concomitant]
     Active Substance: TOPIRAMATE
     Indication: OPTIC NEURITIS
  6. CARAFATE [Concomitant]
     Active Substance: SUCRALFATE
     Indication: CHRONIC GASTRITIS
  7. PROTONIX [Concomitant]
     Active Substance: PANTOPRAZOLE SODIUM
     Indication: CHRONIC GASTRITIS
  8. SYNTHROID [Suspect]
     Active Substance: LEVOTHYROXINE SODIUM
     Indication: THYROIDECTOMY
     Route: 048
     Dates: start: 2018
  9. CARAFATE [Concomitant]
     Active Substance: SUCRALFATE
     Indication: DUODENOGASTRIC REFLUX
  10. FISH OIL [Concomitant]
     Active Substance: FISH OIL
     Indication: SUPPLEMENTATION THERAPY
  11. PLAQUENIL [Concomitant]
     Active Substance: HYDROXYCHLOROQUINE SULFATE
     Indication: ARTHRITIS

REACTIONS (4)
  - Injection site pain [Recovered/Resolved]
  - Device issue [Recovered/Resolved]
  - Incorrect dose administered [Recovered/Resolved]
  - Off label use [Not Recovered/Not Resolved]

NARRATIVE: CASE EVENT DATE: 20201124
